FAERS Safety Report 8474107-6 (Version None)
Quarter: 2012Q2

REPORT INFORMATION
  Report Type: 
  Country: None (occurrence: None)
  Receive Date: 20120628
  Receipt Date: 20110725
  Transmission Date: 20120825
  Serious: Yes (Other)
  Sender: FDA-Public Use
  Company Number: US-MYLANLABS-2011S1010146

PATIENT
  Age: 54 Year
  Sex: Female
  Weight: 72.58 kg

DRUGS (3)
  1. CHEMOTHERAPEUTICS [Suspect]
     Indication: LARYNGEAL CANCER
     Dates: start: 20110101, end: 20110401
  2. CLOZAPINE [Suspect]
     Indication: SCHIZOPHRENIA, PARANOID TYPE
     Dates: start: 20060101, end: 20110501
  3. NEULASTA [Concomitant]
     Indication: LARYNGEAL CANCER
     Dates: start: 20110101

REACTIONS (2)
  - GRANULOCYTOPENIA [None]
  - LEUKOPENIA [None]
